FAERS Safety Report 25005152 (Version 2)
Quarter: 2025Q2

REPORT INFORMATION
  Report Type: Spontaneous
  Country: US (occurrence: US)
  Receive Date: 20250224
  Receipt Date: 20250404
  Transmission Date: 20250717
  Serious: Yes (Other)
  Sender: FERRING
  Company Number: US-FERRINGPH-2025FE00732

PATIENT

DRUGS (1)
  1. CERVIDIL [Suspect]
     Active Substance: DINOPROSTONE
     Indication: Product used for unknown indication
     Route: 065
     Dates: start: 20250117, end: 20250117

REACTIONS (6)
  - Acute kidney injury [Recovered/Resolved]
  - Coagulation factor level abnormal [Recovered/Resolved]
  - Endometritis [Recovered/Resolved]
  - Sepsis [Recovered/Resolved]
  - Postpartum haemorrhage [Recovered/Resolved]
  - Device malfunction [Recovered/Resolved]

NARRATIVE: CASE EVENT DATE: 20250117
